FAERS Safety Report 11869507 (Version 1)
Quarter: 2015Q4

REPORT INFORMATION
  Report Type: Report from Study
  Country: US (occurrence: US)
  Receive Date: 20151227
  Receipt Date: 20151227
  Transmission Date: 20160305
  Serious: Yes (Hospitalization)
  Sender: FDA-Public Use
  Company Number: US-JNJFOC-20140900760

PATIENT
  Age: 33 Year
  Sex: Female
  Weight: 84 kg

DRUGS (6)
  1. APAP [Suspect]
     Active Substance: ACETAMINOPHEN
     Route: 048
  2. APAP [Suspect]
     Active Substance: ACETAMINOPHEN
     Indication: PAIN
     Dosage: FOR SEVERAL MONTHS
     Route: 048
  3. FAMOTIDINE. [Concomitant]
     Active Substance: FAMOTIDINE
     Indication: PRODUCT USED FOR UNKNOWN INDICATION
     Route: 065
  4. CYCLOBENZAPRINE [Concomitant]
     Active Substance: CYCLOBENZAPRINE
     Indication: PRODUCT USED FOR UNKNOWN INDICATION
     Route: 065
  5. BUSPIRONE [Concomitant]
     Active Substance: BUSPIRONE HYDROCHLORIDE
     Indication: PRODUCT USED FOR UNKNOWN INDICATION
     Route: 065
  6. LISINOPRIL. [Concomitant]
     Active Substance: LISINOPRIL
     Indication: PRODUCT USED FOR UNKNOWN INDICATION
     Route: 065

REACTIONS (9)
  - Liver function test abnormal [Unknown]
  - Alanine aminotransferase increased [None]
  - Biliary tract disorder [None]
  - Abdominal pain [Unknown]
  - Blood bilirubin increased [None]
  - Cholelithiasis [None]
  - Nausea [Unknown]
  - Prothrombin level increased [Unknown]
  - Aspartate aminotransferase increased [None]

NARRATIVE: CASE EVENT DATE: 20140826
